FAERS Safety Report 7717206-6 (Version None)
Quarter: 2011Q3

REPORT INFORMATION
  Report Type: 
  Country: None (occurrence: None)
  Receive Date: 20110826
  Receipt Date: 20110826
  Transmission Date: 20111222
  Serious: No
  Sender: FDA-Public Use
  Company Number: None

PATIENT
  Sex: Female

DRUGS (1)
  1. REVLIMID [Suspect]
     Indication: MULTIPLE MYELOMA
     Dosage: REVLIMID 15 MG EVERY OTHER DAY ORALLY
     Route: 048
     Dates: start: 20110101, end: 20110701

REACTIONS (4)
  - HAEMOGLOBIN DECREASED [None]
  - FEMUR FRACTURE [None]
  - BACK PAIN [None]
  - PATHOLOGICAL FRACTURE [None]
